FAERS Safety Report 9486503 (Version 1)
Quarter: 2013Q3

REPORT INFORMATION
  Report Type: Spontaneous
  Country: US (occurrence: None)
  Receive Date: 20130827
  Receipt Date: 20130827
  Transmission Date: 20140515
  Serious: Yes (Disabling, Other)
  Sender: FDA-Public Use
  Company Number: None

PATIENT
  Age: 39 Year
  Sex: Female
  Weight: 127.01 kg

DRUGS (2)
  1. CYMBALTA 20MG ELI LILLY [Suspect]
     Indication: DEPRESSION
     Dosage: TAPER FROM 60-40-20 ONCE DAILY TAKEN BY MOUTH
     Route: 048
     Dates: start: 20130703, end: 20130817
  2. CYMBALTA 20MG ELI LILLY [Suspect]
     Indication: NEURALGIA
     Dosage: TAPER FROM 60-40-20 ONCE DAILY TAKEN BY MOUTH
     Route: 048
     Dates: start: 20130703, end: 20130817

REACTIONS (12)
  - Hot flush [None]
  - Pruritus [None]
  - Formication [None]
  - Paraesthesia [None]
  - Disturbance in sexual arousal [None]
  - Crying [None]
  - Anger [None]
  - Hostility [None]
  - Nausea [None]
  - Diarrhoea [None]
  - Decreased appetite [None]
  - Dysgeusia [None]
